FAERS Safety Report 5399895-7 (Version None)
Quarter: 2007Q3

REPORT INFORMATION
  Report Type: 
  Country: None (occurrence: None)
  Receive Date: 20070730
  Receipt Date: 20070720
  Transmission Date: 20080115
  Serious: Yes (Other)
  Sender: FDA-Public Use
  Company Number: PHEH2007US04509

PATIENT

DRUGS (6)
  1. ZELNORM [Suspect]
     Dosage: 6 MG, ONCE/SINGLE
     Route: 048
     Dates: start: 20061201, end: 20061201
  2. ZOMIG [Concomitant]
     Indication: MIGRAINE
  3. XANAX [Concomitant]
  4. WELLBUTRIN XL [Concomitant]
  5. CALCIUM CHLORIDE [Concomitant]
  6. MULTIVITAMIN [Concomitant]

REACTIONS (8)
  - ANXIETY [None]
  - CHEST DISCOMFORT [None]
  - CHEST PAIN [None]
  - ELECTROCARDIOGRAM ST SEGMENT ABNORMAL [None]
  - ELECTROCARDIOGRAM T WAVE AMPLITUDE DECREASED [None]
  - HEART RATE INCREASED [None]
  - LIMB DISCOMFORT [None]
  - PALPITATIONS [None]
